FAERS Safety Report 9147720 (Version 2)
Quarter: 2013Q4

REPORT INFORMATION
  Report Type: Spontaneous
  Country: GB (occurrence: GB)
  Receive Date: 20130307
  Receipt Date: 20131030
  Transmission Date: 20140711
  Serious: Yes (Disabling)
  Sender: FDA-Public Use
  Company Number: GB-B.I. PHARMACEUTICALS,INC./RIDGEFIELD-2013-UK-00295UK

PATIENT
  Age: 74 Year
  Sex: Female
  Weight: 57 kg

DRUGS (18)
  1. PRADAXA [Suspect]
     Indication: ATRIAL FIBRILLATION
     Route: 048
     Dates: start: 20120808, end: 20130201
  2. ASPIRIN [Concomitant]
     Dosage: 75 MG
  3. DIGOXIN [Concomitant]
     Dosage: 125 MCG
  4. ERYTHROMYCIN [Concomitant]
     Dosage: 1000 MG
  5. FENTANYL [Concomitant]
     Dosage: 288 MCG
     Route: 062
  6. FENTANYL [Concomitant]
     Dosage: 600 MCG
     Route: 062
  7. FERROUS SULFATE [Concomitant]
     Dosage: 200 MG
  8. FORTISIP [Concomitant]
  9. FUROSEMIDE [Concomitant]
     Dosage: 40 MG
  10. IBUPROFEN [Concomitant]
     Indication: PAIN
  11. METRONIDAZOLE [Concomitant]
     Dosage: 1200 MG
  12. OMEPRAZOLE [Concomitant]
     Dosage: 40 MG
  13. PARACETAMOL [Concomitant]
     Indication: PAIN
  14. PROCHLORPERAZINE [Concomitant]
     Indication: VERTIGO
     Route: 002
  15. SPIRONOLACTONE [Concomitant]
     Dosage: 25 MG
  16. VERAPAMIL [Concomitant]
     Dosage: 120 MG
  17. DOXYCYCLINE [Concomitant]
  18. VERA-TIL SR [Concomitant]
     Dosage: 120 MG

REACTIONS (4)
  - Staphylococcal infection [Not Recovered/Not Resolved]
  - Skin ulcer [Not Recovered/Not Resolved]
  - Pain [Not Recovered/Not Resolved]
  - Skin exfoliation [Not Recovered/Not Resolved]
